FAERS Safety Report 22652935 (Version 1)
Quarter: 2023Q2

REPORT INFORMATION
  Report Type: Spontaneous
  Country: US (occurrence: US)
  Receive Date: 20230629
  Receipt Date: 20230629
  Transmission Date: 20230722
  Serious: Yes (Other)
  Sender: FDA-Public Use
  Company Number: US-UCBSA-2023031753

PATIENT
  Sex: Male
  Weight: 86 kg

DRUGS (2)
  1. KEPPRA [Suspect]
     Active Substance: LEVETIRACETAM
     Indication: Seizure
     Dosage: 500 MILLIGRAM, 2X/DAY (BID)
  2. BRIVIACT [Suspect]
     Active Substance: BRIVARACETAM
     Indication: Seizure
     Dosage: 50 MILLIGRAM, 2X/DAY (BID)
     Route: 048
     Dates: start: 20230608

REACTIONS (13)
  - Seizure [Unknown]
  - Suicidal ideation [Unknown]
  - Mood swings [Unknown]
  - Photophobia [Unknown]
  - Dizziness [Unknown]
  - Vision blurred [Unknown]
  - Paraesthesia [Unknown]
  - Anger [Unknown]
  - Diplopia [Unknown]
  - Aggression [Unknown]
  - Weight decreased [Unknown]
  - Product dose omission issue [Unknown]
  - Therapy change [Unknown]
